FAERS Safety Report 18766937 (Version 1)
Quarter: 2021Q1

REPORT INFORMATION
  Report Type: Report from Study
  Country: US (occurrence: US)
  Receive Date: 20210121
  Receipt Date: 20210121
  Transmission Date: 20210419
  Serious: Yes (Hospitalization)
  Sender: FDA-Public Use
  Company Number: US-JNJFOC-20210118857

PATIENT
  Age: 55 Year
  Sex: Male

DRUGS (2)
  1. SPRAVATO [Suspect]
     Active Substance: ESKETAMINE
     Indication: PRODUCT USED FOR UNKNOWN INDICATION
     Dosage: 1 TOTAL DOSE
     Dates: start: 20201207, end: 20201207
  2. SPRAVATO [Suspect]
     Active Substance: ESKETAMINE
     Dosage: 4 TOTAL DOSES
     Dates: start: 20201216, end: 20201230

REACTIONS (1)
  - Hospitalisation [Unknown]
